FAERS Safety Report 8429530-2 (Version None)
Quarter: 2012Q2

REPORT INFORMATION
  Report Type: 
  Country: None (occurrence: None)
  Receive Date: 20120612
  Receipt Date: 20120608
  Transmission Date: 20120825
  Serious: Yes (Hospitalization, Other)
  Sender: FDA-Public Use
  Company Number: US-PFIZER INC-2012138370

PATIENT
  Sex: Female
  Weight: 65.76 kg

DRUGS (3)
  1. PRISTIQ [Suspect]
     Dosage: 50 MG, DAILY
     Dates: start: 20120201, end: 20120602
  2. PRISTIQ [Suspect]
     Dosage: 50 MG, DAILY
     Dates: start: 20120608
  3. HEPARIN [Suspect]
     Indication: SURGERY
     Dosage: UNK, DAILY
     Dates: start: 20120604, end: 20120607

REACTIONS (4)
  - SURGERY [None]
  - HYPERSENSITIVITY [None]
  - INSOMNIA [None]
  - HALLUCINATION [None]
